FAERS Safety Report 11131765 (Version 5)
Quarter: 2017Q3

REPORT INFORMATION
  Report Type: Report from Study
  Country: DE (occurrence: DE)
  Receive Date: 20150522
  Receipt Date: 20170726
  Transmission Date: 20171127
  Serious: Yes (Hospitalization)
  Sender: FDA-Public Use
  Company Number: DE-ROCHE-1518077

PATIENT
  Sex: Female

DRUGS (3)
  1. ROACTEMRA [Suspect]
     Active Substance: TOCILIZUMAB
     Indication: RHEUMATOID ARTHRITIS
     Route: 058
     Dates: start: 20141205, end: 20150103
  2. ROACTEMRA [Suspect]
     Active Substance: TOCILIZUMAB
     Dosage: FIFTH ADMINISTRATION ON 18/MAY/2015
     Route: 058
     Dates: end: 201701
  3. METHOTREXATE. [Concomitant]
     Active Substance: METHOTREXATE
     Indication: RHEUMATOID ARTHRITIS
     Route: 048

REACTIONS (8)
  - Drug ineffective [Unknown]
  - Vestibular disorder [Recovering/Resolving]
  - Joint swelling [Not Recovered/Not Resolved]
  - Influenza [Recovering/Resolving]
  - Drug effect decreased [Unknown]
  - Arthralgia [Not Recovered/Not Resolved]
  - Wound [Unknown]
  - Synovial cyst [Not Recovered/Not Resolved]

NARRATIVE: CASE EVENT DATE: 20150101
